FAERS Safety Report 13200607 (Version 3)
Quarter: 2017Q1

REPORT INFORMATION
  Report Type: Spontaneous
  Country: ES (occurrence: ES)
  Receive Date: 20170208
  Receipt Date: 20170322
  Transmission Date: 20170428
  Serious: Yes (Death)
  Sender: FDA-Public Use
  Company Number: ES-ASTRAZENECA-2017SE13803

PATIENT
  Age: 27461 Day
  Sex: Female

DRUGS (3)
  1. KEPPRA [Concomitant]
     Active Substance: LEVETIRACETAM
     Indication: SEIZURE
     Route: 048
     Dates: start: 201605, end: 201612
  2. HIBOR [Concomitant]
     Active Substance: BEMIPARIN SODIUM
     Indication: ANTIPLATELET THERAPY
     Route: 058
     Dates: start: 2011, end: 201612
  3. OSIMERTINIB [Suspect]
     Active Substance: OSIMERTINIB
     Indication: NON-SMALL CELL LUNG CANCER METASTATIC
     Route: 048
     Dates: start: 20160810, end: 20161203

REACTIONS (2)
  - Pneumonia [Fatal]
  - Septic shock [Fatal]

NARRATIVE: CASE EVENT DATE: 20161203
